FAERS Safety Report 5482612-X (Version None)
Quarter: 2007Q4

REPORT INFORMATION
  Report Type: 
  Country: None (occurrence: None)
  Receive Date: 20071011
  Receipt Date: 20070817
  Transmission Date: 20080405
  Serious: No
  Sender: FDA-Public Use
  Company Number: A0671265A

PATIENT
  Age: 72 Year
  Sex: Female

DRUGS (3)
  1. TYKERB [Suspect]
     Indication: BREAST CANCER
     Dosage: 1250MG PER DAY
     Route: 048
     Dates: start: 20070815
  2. HEART MEDICATION [Concomitant]
  3. SENOKOT [Concomitant]

REACTIONS (1)
  - DIARRHOEA [None]
